FAERS Safety Report 7509946-9 (Version None)
Quarter: 2011Q2

REPORT INFORMATION
  Report Type: 
  Country: None (occurrence: None)
  Receive Date: 20110527
  Receipt Date: 20110523
  Transmission Date: 20111010
  Serious: Yes (Death)
  Sender: FDA-Public Use
  Company Number: PHHY2011BR44282

PATIENT
  Sex: Male

DRUGS (8)
  1. TRENTAL [Concomitant]
     Dosage: 400 MG, UNK
  2. LIPITOR [Concomitant]
     Indication: BLOOD CHOLESTEROL INCREASED
     Dosage: UNK
  3. CALTREN [Concomitant]
     Dosage: 20 MG, UNK
  4. PLAVIX [Concomitant]
  5. TEGRETOL [Suspect]
     Indication: CONVULSION
     Dosage: 200 MG, BID (MORNING AND EVENING)
  6. LOTENSIN [Suspect]
     Dosage: 10 MG, UNK
  7. ULORIC [Concomitant]
     Dosage: 300 MG, UNK
  8. HYGROTON [Suspect]
     Dosage: 25 MG, QW3

REACTIONS (1)
  - CEREBROVASCULAR ACCIDENT [None]
